FAERS Safety Report 7994097-X (Version None)
Quarter: 2011Q4

REPORT INFORMATION
  Report Type: 
  Country: None (occurrence: None)
  Receive Date: 20111220
  Receipt Date: 20111207
  Transmission Date: 20120403
  Serious: No
  Sender: FDA-Public Use
  Company Number: CA-JNJFOC-20111206415

PATIENT
  Sex: Female
  Weight: 68.5 kg

DRUGS (7)
  1. MAXALT [Concomitant]
     Indication: MIGRAINE
     Dosage: AS NEEDED
     Route: 065
  2. REMICADE [Suspect]
     Indication: CROHN'S DISEASE
     Dosage: 2ND TREATMENT
     Route: 042
     Dates: start: 20111011
  3. IMOVANE [Concomitant]
     Route: 065
  4. YASMIN [Concomitant]
     Route: 065
  5. SYNTHROID [Concomitant]
     Route: 065
  6. ELAVIL [Concomitant]
     Indication: MIGRAINE
     Dosage: AS NEEDED
     Route: 065
  7. PREVACID [Concomitant]
     Dosage: AS NEEDED
     Route: 065

REACTIONS (1)
  - TONSILLAR NEOPLASM [None]
